FAERS Safety Report 4529915-0 (Version None)
Quarter: 2004Q4

REPORT INFORMATION
  Report Type: 
  Country: None (occurrence: None)
  Receive Date: 20041214
  Receipt Date: 20041201
  Transmission Date: 20050328
  Serious: Yes (Other)
  Sender: FDA-Public Use
  Company Number: 2004102576

PATIENT
  Age: 72 Year
  Sex: Female
  Weight: 104.3273 kg

DRUGS (3)
  1. LIPITOR [Suspect]
     Indication: BLOOD CHOLESTEROL
     Dosage: ORAL
     Route: 048
     Dates: start: 20010101
  2. CELECOXIB (CELECOXIB) [Concomitant]
  3. TOLTERODINE TARTRATE [Concomitant]

REACTIONS (4)
  - CATARACT OPERATION [None]
  - EYELID PTOSIS [None]
  - FALL [None]
  - NERVE COMPRESSION [None]
